FAERS Safety Report 6380664-6 (Version None)
Quarter: 2009Q3

REPORT INFORMATION
  Report Type: 
  Country: None (occurrence: None)
  Receive Date: 20090929
  Receipt Date: 20090923
  Transmission Date: 20100115
  Serious: Yes (Other)
  Sender: FDA-Public Use
  Company Number: FR-JNJFOC-20090907143

PATIENT
  Age: 53 Year
  Sex: Female

DRUGS (3)
  1. REMICADE [Suspect]
     Indication: ENTEROCOLITIS HAEMORRHAGIC
     Route: 042
     Dates: start: 20080501
  2. IMUREL [Concomitant]
     Indication: ENTEROCOLITIS HAEMORRHAGIC
  3. FIVASA [Concomitant]
     Indication: ENTEROCOLITIS HAEMORRHAGIC

REACTIONS (1)
  - TRANSIENT ACANTHOLYTIC DERMATOSIS [None]
